FAERS Safety Report 5071763-X (Version None)
Quarter: 2006Q3

REPORT INFORMATION
  Report Type: 
  Country: None (occurrence: None)
  Receive Date: 20060801
  Receipt Date: 20060713
  Transmission Date: 20061208
  Serious: Yes (Other)
  Sender: FDA-Public Use
  Company Number: AR200603003866

PATIENT
  Age: 14 Year
  Sex: Male
  Weight: 55.3 kg

DRUGS (2)
  1. STRATTERA [Suspect]
     Indication: ATTENTION DEFICIT/HYPERACTIVITY DISORDER
     Dosage: 60 MG, DAILY (1/D), ORAL
     Route: 048
     Dates: start: 20040601, end: 20051201
  2. STRATTERA [Suspect]
     Indication: ATTENTION DEFICIT/HYPERACTIVITY DISORDER
     Dosage: 60 MG, DAILY (1/D), ORAL
     Route: 048
     Dates: start: 20060601

REACTIONS (5)
  - ARRHYTHMIA [None]
  - PULMONARY VALVE DISEASE [None]
  - SUPRAVENTRICULAR EXTRASYSTOLES [None]
  - VENTRICULAR EXTRASYSTOLES [None]
  - WOLFF-PARKINSON-WHITE SYNDROME [None]
